FAERS Safety Report 11140056 (Version 1)
Quarter: 2015Q2

REPORT INFORMATION
  Report Type: Spontaneous
  Country: US (occurrence: US)
  Receive Date: 20150527
  Receipt Date: 20150527
  Transmission Date: 20150821
  Serious: No
  Sender: FDA-Public Use
  Company Number: US-ENDO PHARMACEUTICALS INC.-SPLN20140070

PATIENT
  Sex: Female
  Weight: 56.75 kg

DRUGS (1)
  1. SUPPRELIN LA [Suspect]
     Active Substance: HISTRELIN ACETATE
     Indication: PRODUCT USED FOR UNKNOWN INDICATION
     Route: 058
     Dates: start: 201308, end: 20140814

REACTIONS (4)
  - Alopecia [Unknown]
  - Growth retardation [Unknown]
  - Drug ineffective [Recovered/Resolved]
  - Weight increased [Unknown]
